FAERS Safety Report 9078161 (Version 1)
Quarter: 2013Q1

REPORT INFORMATION
  Report Type: Report from Study
  Country: US (occurrence: US)
  Receive Date: 20130130
  Receipt Date: 20130130
  Transmission Date: 20140127
  Serious: No
  Sender: FDA-Public Use
  Company Number: US-ABBOTT-12P-163-0971457-00

PATIENT
  Age: 25 Year
  Sex: Male

DRUGS (5)
  1. HUMIRA 40 MG/0.8 ML PEN [Suspect]
     Indication: CROHN^S DISEASE
     Dates: start: 20120804, end: 20120804
  2. HUMIRA 40 MG/0.8 ML PEN [Suspect]
     Dates: start: 20120818, end: 20120818
  3. HUMIRA 40 MG/0.8 ML PEN [Suspect]
  4. ASACOL HD [Concomitant]
     Indication: CROHN^S DISEASE
  5. 6-MP [Concomitant]
     Indication: CROHN^S DISEASE

REACTIONS (3)
  - Oropharyngeal pain [Not Recovered/Not Resolved]
  - Diarrhoea [Not Recovered/Not Resolved]
  - Off label use [Not Recovered/Not Resolved]
